FAERS Safety Report 6930427-5 (Version None)
Quarter: 2010Q3

REPORT INFORMATION
  Report Type: 
  Country: None (occurrence: None)
  Receive Date: 20100818
  Receipt Date: 20100813
  Transmission Date: 20110219
  Serious: Yes (Other)
  Sender: FDA-Public Use
  Company Number: US-PFIZER INC-2010102491

PATIENT
  Sex: Male

DRUGS (4)
  1. ARGATROBAN [Suspect]
     Dosage: 0.5 UG/KG/MIN
     Route: 042
     Dates: start: 20100802
  2. ROCEPHIN [Concomitant]
  3. ALLOPURINOL [Concomitant]
  4. KEPPRA [Concomitant]

REACTIONS (1)
  - LIPASE INCREASED [None]
